FAERS Safety Report 10103616 (Version 1)
Quarter: 2014Q2

REPORT INFORMATION
  Report Type: Spontaneous
  Country: US (occurrence: US)
  Receive Date: 20140424
  Receipt Date: 20140424
  Transmission Date: 20141212
  Serious: No
  Sender: FDA-Public Use
  Company Number: US-009507513-1403USA012700

PATIENT
  Age: 40 Year
  Sex: Female

DRUGS (3)
  1. CORICIDIN HBP COLD AND FLU [Suspect]
     Indication: NASOPHARYNGITIS
     Dosage: UNK, UNKNOWN
     Route: 048
     Dates: start: 201403
  2. CORICIDIN HBP COLD AND FLU [Suspect]
     Indication: SINUS HEADACHE
  3. CORICIDIN HBP COLD AND FLU [Suspect]
     Indication: NASAL CONGESTION

REACTIONS (1)
  - Drug ineffective for unapproved indication [Unknown]
